FAERS Safety Report 9540131 (Version 2)
Quarter: 2013Q3

REPORT INFORMATION
  Report Type: Spontaneous
  Country: US (occurrence: US)
  Receive Date: 20130920
  Receipt Date: 20130920
  Transmission Date: 20140515
  Serious: Yes (Other)
  Sender: FDA-Public Use
  Company Number: US-ROCHE-1275323

PATIENT
  Age: 64 Year
  Sex: Female
  Weight: 67.19 kg

DRUGS (9)
  1. XOLAIR [Suspect]
     Indication: ASTHMA
     Dosage: BEEN ON XOLAIR FOR 2 YEARS
     Route: 058
     Dates: start: 201206
  2. ALLEGRA [Suspect]
     Indication: RHINITIS ALLERGIC
     Route: 048
  3. ADVAIR [Suspect]
     Indication: ASTHMA
     Route: 065
  4. ALVESCO [Suspect]
     Indication: ASTHMA
     Route: 065
  5. LOSARTAN [Concomitant]
     Indication: HYPERTENSION
     Route: 048
  6. FLONASE [Concomitant]
     Indication: RHINITIS ALLERGIC
     Route: 065
  7. NEXIUM [Concomitant]
     Indication: GASTROOESOPHAGEAL REFLUX DISEASE
     Route: 048
  8. CRESTOR [Concomitant]
     Indication: DYSLIPIDAEMIA
     Route: 048
  9. AZITHROMYCIN [Concomitant]

REACTIONS (1)
  - Sinusitis [Unknown]
